FAERS Safety Report 16241148 (Version 1)
Quarter: 2019Q2

REPORT INFORMATION
  Report Type: Spontaneous
  Country: US (occurrence: US)
  Receive Date: 20190425
  Receipt Date: 20190425
  Transmission Date: 20190711
  Serious: No
  Sender: FDA-Public Use
  Company Number: US-TEVA-2019-US-1033455

PATIENT
  Sex: Female

DRUGS (1)
  1. BUPROERTAB-A (BUPROPION) [Suspect]
     Active Substance: BUPROPION
     Indication: DEPRESSION
     Dosage: DOSE STRENGTH: 100 (TAKING THE PRODUCT FOR MANY YEARS)
     Route: 065

REACTIONS (4)
  - Crying [Unknown]
  - Drug ineffective [Unknown]
  - Product substitution issue [Unknown]
  - Depression [Unknown]
